FAERS Safety Report 21220945 (Version 1)
Quarter: 2022Q3

REPORT INFORMATION
  Report Type: Spontaneous
  Country: US (occurrence: US)
  Receive Date: 20220817
  Receipt Date: 20220817
  Transmission Date: 20221026
  Serious: Yes (Other)
  Sender: FDA-Public Use
  Company Number: US-CELLTRION INC.-2022US013197

PATIENT

DRUGS (2)
  1. RITUXIMAB [Suspect]
     Active Substance: RITUXIMAB
     Indication: Coombs positive haemolytic anaemia
     Dosage: SECOND-LINE THERAPY
  2. RITUXIMAB [Suspect]
     Active Substance: RITUXIMAB
     Indication: Lymphopenia

REACTIONS (5)
  - Evans syndrome [Unknown]
  - Blood immunoglobulin G decreased [Unknown]
  - Infection [Unknown]
  - Therapy partial responder [Unknown]
  - Off label use [Unknown]
